FAERS Safety Report 7350955-0 (Version None)
Quarter: 2011Q1

REPORT INFORMATION
  Report Type: 
  Country: None (occurrence: None)
  Receive Date: 20110314
  Receipt Date: 20110304
  Transmission Date: 20110831
  Serious: Yes (Hospitalization, Other)
  Sender: FDA-Public Use
  Company Number: US-ASTRAZENECA-2011SE12401

PATIENT
  Age: 46 Year
  Sex: Male

DRUGS (4)
  1. SYMBICORT [Suspect]
     Indication: DYSPNOEA
     Dosage: 160/4.5 MCG TWO PUFFS IN THE MORNING AND TWO PUFFS IN THE EVENING
     Route: 055
  2. NEXIUM [Suspect]
     Route: 048
  3. SYMBICORT [Suspect]
     Indication: BRONCHITIS
     Dosage: 160/4.5 MCG TWO PUFFS IN THE MORNING AND TWO PUFFS IN THE EVENING
     Route: 055
  4. CRESTOR [Suspect]
     Route: 048

REACTIONS (4)
  - STAPHYLOCOCCAL INFECTION [None]
  - HERNIA [None]
  - PNEUMONIA [None]
  - SPLENIC RUPTURE [None]
